FAERS Safety Report 6155114-5 (Version None)
Quarter: 2009Q2

REPORT INFORMATION
  Report Type: 
  Country: None (occurrence: None)
  Receive Date: 20090413
  Receipt Date: 20090402
  Transmission Date: 20091009
  Serious: Yes (Hospitalization)
  Sender: FDA-Public Use
  Company Number: 2009SP007211

PATIENT
  Age: 86 Year
  Sex: Female

DRUGS (1)
  1. PROVENTIL-HFA [Suspect]
     Indication: DRUG USE FOR UNKNOWN INDICATION
     Dosage: PO
     Route: 048

REACTIONS (4)
  - HOT FLUSH [None]
  - HYPERHIDROSIS [None]
  - INFECTION PARASITIC [None]
  - PRODUCT QUALITY ISSUE [None]
